FAERS Safety Report 5987575-6 (Version None)
Quarter: 2008Q4

REPORT INFORMATION
  Report Type: 
  Country: None (occurrence: None)
  Receive Date: 20081209
  Receipt Date: 20081202
  Transmission Date: 20090506
  Serious: Yes (Other)
  Sender: FDA-Public Use
  Company Number: CA-ASTRAZENECA-2008UW26848

PATIENT
  Age: 60 Year
  Sex: Male

DRUGS (1)
  1. ENTOCORT EC [Suspect]
     Indication: DIVERTICULITIS
     Route: 054
     Dates: start: 20070501

REACTIONS (3)
  - ANORECTAL INFECTION [None]
  - PSORIASIS [None]
  - RENAL CANCER [None]
